FAERS Safety Report 25934763 (Version 2)
Quarter: 2025Q4

REPORT INFORMATION
  Report Type: Spontaneous
  Country: CH (occurrence: CH)
  Receive Date: 20251017
  Receipt Date: 20251114
  Transmission Date: 20260118
  Serious: Yes (Hospitalization, Congenital Anomaly, Other)
  Sender: RANBAXY
  Company Number: CH-SUN PHARMACEUTICAL INDUSTRIES LTD-2025R1-532199

PATIENT
  Sex: Male

DRUGS (2)
  1. ASPIRIN [Suspect]
     Active Substance: ASPIRIN
     Indication: Pre-eclampsia
     Dosage: UNK
     Route: 064
  2. ASPIRIN [Suspect]
     Active Substance: ASPIRIN
     Indication: HELLP syndrome

REACTIONS (4)
  - Foetal exposure during pregnancy [Unknown]
  - Haematuria [Recovering/Resolving]
  - Thrombosis [Recovering/Resolving]
  - Antithrombin III deficiency [Recovering/Resolving]
